FAERS Safety Report 8608858 (Version 2)
Quarter: 2014Q1

REPORT INFORMATION
  Report Type: Spontaneous
  Country: US (occurrence: None)
  Receive Date: 20120323
  Receipt Date: 20130305
  Transmission Date: 20141002
  Serious: Yes (Other)
  Sender: FDA-Public Use
  Company Number: 163-21880-11120129

PATIENT
  Age: 82 Year
  Sex: Male

DRUGS (11)
  1. REVLIMID [Suspect]
     Indication: MYELODYSPLASTIC SYNDROME
     Dosage: 5 MG, DAILYXD1-21 Q 28 PO.
     Route: 048
     Dates: start: 20111108
  2. AMLODIPINE (AMLODIPINE) (TABLETS) [Concomitant]
  3. ASA (ACETYLSALICYLIC ACID) (CHEWABLE TABLET) [Concomitant]
  4. FLOMAX (TAMSULOSIN HYDRCHLORIDE) (CAPSULES) [Concomitant]
  5. HYDROCORTISONE (HYDROCORTISONE) (2 PERCENT, UNKNOWN) [Concomitant]
  6. LISINOPRIL (LISINOPRIL) (TABLETS) [Concomitant]
  7. LORATAB (VICODIN) (TABLETS) [Concomitant]
  8. LOTRISONE (LOTRISONE)(CREAM) [Concomitant]
  9. LUPRON DEPOT (LEUPRORELIN ACETATE) [Concomitant]
  10. METFORMIN (METFORMIN) (TABLETS) [Concomitant]
  11. PREDNISONE (PREDNISONE) [Concomitant]

REACTIONS (2)
  - Anaemia [None]
  - Depression [None]
